FAERS Safety Report 6055069-8 (Version None)
Quarter: 2009Q1

REPORT INFORMATION
  Report Type: 
  Country: None (occurrence: None)
  Receive Date: 20090128
  Receipt Date: 20090116
  Transmission Date: 20090719
  Serious: Yes (Life-Threatening, Hospitalization, Other)
  Sender: FDA-Public Use
  Company Number: RU-ROCHE-608713

PATIENT
  Sex: Male
  Weight: 69.7 kg

DRUGS (8)
  1. METHOXY POLYETHYLENE GLYCOL-EPOETIN BETA [Suspect]
     Dosage: DOSE REPORTED: 120MKG, LAST DOSE PRIOR TO SAE WAS ON 25 DECEMBER 2008.
     Route: 042
     Dates: start: 20081127
  2. MONOPRIL [Concomitant]
     Dates: start: 20080101
  3. ENOXAPARIN SODIUM [Concomitant]
     Dates: start: 20080115
  4. CEFAZOLIN [Concomitant]
     Dates: start: 20090115
  5. ACETYLSALICYLIC ACID [Concomitant]
     Dates: start: 20080101
  6. CURANTYL [Concomitant]
     Dates: start: 20080101
  7. CAROLINA LUPINE [Concomitant]
     Dates: start: 20080101
  8. ATENOLOL [Concomitant]
     Dates: start: 20080101

REACTIONS (3)
  - HAEMOPTYSIS [None]
  - PNEUMONIA [None]
  - PULMONARY EMBOLISM [None]
